FAERS Safety Report 5081810-7 (Version None)
Quarter: 2006Q3

REPORT INFORMATION
  Report Type: 
  Country: None (occurrence: None)
  Receive Date: 20060816
  Receipt Date: 20060810
  Transmission Date: 20061208
  Serious: Yes (Other)
  Sender: FDA-Public Use
  Company Number: ES-GLAXOSMITHKLINE-B0434058A

PATIENT
  Age: 45 Year
  Sex: Male
  Weight: 66 kg

DRUGS (1)
  1. KIVEXA [Suspect]
     Indication: HIV INFECTION
     Route: 048
     Dates: start: 20060408, end: 20060508

REACTIONS (7)
  - ARTHRALGIA [None]
  - HYPERSENSITIVITY [None]
  - MALAISE [None]
  - MYALGIA [None]
  - PYREXIA [None]
  - RASH MACULAR [None]
  - RASH MACULO-PAPULAR [None]
